FAERS Safety Report 5931674-1 (Version None)
Quarter: 2008Q4

REPORT INFORMATION
  Report Type: 
  Country: None (occurrence: None)
  Receive Date: 20081027
  Receipt Date: 20081017
  Transmission Date: 20090506
  Serious: Yes (Hospitalization)
  Sender: FDA-Public Use
  Company Number: PHHO2008SG01238

PATIENT
  Sex: Female
  Weight: 58.6 kg

DRUGS (4)
  1. NEORAL [Suspect]
     Indication: RENAL TRANSPLANT
     Dosage: 70 MG, BID
     Route: 048
     Dates: start: 20071213
  2. NEORAL [Suspect]
     Dosage: 60 MG, BID
     Route: 048
     Dates: start: 20080428
  3. ERL 080A ERL+TAB [Suspect]
     Indication: RENAL TRANSPLANT
     Dosage: 720 MG, BID
     Route: 048
     Dates: start: 20060924, end: 20070717
  4. ERL 080A ERL+TAB [Suspect]
     Dosage: 360 MG, BID
     Route: 048
     Dates: start: 20070718, end: 20080610

REACTIONS (11)
  - BLOOD CREATINE INCREASED [None]
  - COMPLICATIONS OF TRANSPLANTED KIDNEY [None]
  - DEHYDRATION [None]
  - DRUG INEFFECTIVE [None]
  - KIDNEY FIBROSIS [None]
  - KIDNEY TRANSPLANT REJECTION [None]
  - NEPHROPATHY TOXIC [None]
  - RENAL ARTERIOSCLEROSIS [None]
  - RENAL ARTERITIS [None]
  - RENAL TUBULAR ATROPHY [None]
  - VARICELLA [None]
